FAERS Safety Report 4632280-1 (Version None)
Quarter: 2005Q2

REPORT INFORMATION
  Report Type: 
  Country: None (occurrence: None)
  Receive Date: 20050411
  Receipt Date: 20050401
  Transmission Date: 20051028
  Serious: Yes (Hospitalization)
  Sender: FDA-Public Use
  Company Number: JP-ROCHE-400328

PATIENT
  Age: 61 Year
  Sex: Female

DRUGS (6)
  1. TICLOPIDINE HCL [Suspect]
     Route: 048
     Dates: start: 19981015, end: 19981026
  2. BUFFERIN [Suspect]
     Route: 048
     Dates: start: 19981015, end: 19981026
  3. HEPARIN SODIUM [Suspect]
     Indication: DRUG USE FOR UNKNOWN INDICATION
     Route: 065
  4. ZANTAC [Concomitant]
  5. KOLANTYL [Concomitant]
     Route: 048
  6. LAC B [Concomitant]
     Route: 048

REACTIONS (3)
  - HEPATIC FUNCTION ABNORMAL [None]
  - INTRA-ABDOMINAL HAEMORRHAGE [None]
  - PULMONARY EMBOLISM [None]
